FAERS Safety Report 6631474-3 (Version None)
Quarter: 2010Q1

REPORT INFORMATION
  Report Type: 
  Country: None (occurrence: None)
  Receive Date: 20100311
  Receipt Date: 20100311
  Transmission Date: 20100710
  Serious: Yes (Hospitalization)
  Sender: FDA-Public Use
  Company Number: None

PATIENT
  Age: 69 Year
  Sex: Female
  Weight: 81.6475 kg

DRUGS (4)
  1. FOSAMAX [Suspect]
  2. ACTONEL [Suspect]
  3. BONIVA [Suspect]
  4. RECLAST [Suspect]

REACTIONS (5)
  - DRUG INEFFECTIVE [None]
  - FALL [None]
  - FEMUR FRACTURE [None]
  - FRACTURE DISPLACEMENT [None]
  - GASTROINTESTINAL DISORDER [None]
